FAERS Safety Report 9681192 (Version 1)
Quarter: 2013Q4

REPORT INFORMATION
  Report Type: Spontaneous
  Country: US (occurrence: US)
  Receive Date: 20131111
  Receipt Date: 20131111
  Transmission Date: 20140711
  Serious: No
  Sender: FDA-Public Use
  Company Number: US-B.I. PHARMACEUTICALS,INC./RIDGEFIELD-2013-BI-34414BP

PATIENT
  Sex: Female
  Weight: 67 kg

DRUGS (19)
  1. SPIRIVA [Suspect]
     Indication: CHRONIC OBSTRUCTIVE PULMONARY DISEASE
     Dosage: 18 MCG
     Route: 055
     Dates: start: 2006
  2. COUMADIN [Concomitant]
     Indication: CEREBROVASCULAR ACCIDENT PROPHYLAXIS
     Dosage: 10 MG
     Route: 048
     Dates: start: 2001
  3. GABAPENTIN [Concomitant]
     Indication: ARTHRITIS
     Dosage: 600 MG
     Route: 048
  4. GABAPENTIN [Concomitant]
     Indication: ARTHRITIS
  5. PRIMIDONE [Concomitant]
     Indication: TREMOR
     Dosage: 50 MG
     Route: 048
  6. DIGOXIN [Concomitant]
     Indication: CARDIAC DISORDER
     Dosage: 0.125 MCG
     Route: 048
  7. IRON [Concomitant]
     Indication: SUPPLEMENTATION THERAPY
     Route: 048
  8. SPIRINOLACTONE [Concomitant]
     Dosage: 25 MG
     Route: 048
  9. POTASSIUM [Concomitant]
     Indication: SUPPLEMENTATION THERAPY
     Dosage: 10 MEQ
     Route: 048
  10. PRILOSEC [Concomitant]
     Indication: GASTROOESOPHAGEAL REFLUX DISEASE
     Dosage: 10 MG
     Route: 048
  11. COREG [Concomitant]
     Indication: HYPERTENSION
     Dosage: 12.5 MG
     Route: 048
     Dates: start: 2012
  12. SYMBICORT [Concomitant]
     Indication: CHRONIC OBSTRUCTIVE PULMONARY DISEASE
     Dosage: 4 PUF
     Route: 055
  13. MECLIZINE [Concomitant]
     Indication: DIZZINESS
     Dosage: PRN
     Route: 048
  14. LOSARTAN [Concomitant]
     Indication: HYPERTENSION
     Dosage: 100 MG
     Route: 048
  15. FUROSEMIDE [Concomitant]
     Indication: CARDIAC FAILURE CONGESTIVE
     Dosage: 80 MG
     Route: 048
  16. PRAVASTATIN [Concomitant]
     Indication: BLOOD CHOLESTEROL INCREASED
     Dosage: 20 MG
     Route: 048
  17. RISPIRADONE [Concomitant]
     Indication: DEPRESSION
     Dosage: 0.25 MG
     Route: 048
  18. VENLAFAXINE ER [Concomitant]
     Indication: DEPRESSION
     Dosage: 150 MG
     Route: 048
  19. VENLAFAXINE ER [Concomitant]
     Dosage: 15 MG
     Route: 048

REACTIONS (1)
  - Memory impairment [Not Recovered/Not Resolved]
